FAERS Safety Report 7584253-7 (Version None)
Quarter: 2011Q2

REPORT INFORMATION
  Report Type: 
  Country: None (occurrence: None)
  Receive Date: 20110630
  Receipt Date: 20110608
  Transmission Date: 20111010
  Serious: Yes (Hospitalization)
  Sender: FDA-Public Use
  Company Number: FR-PFIZER INC-2008160888

PATIENT
  Age: 57 Year
  Sex: Male
  Weight: 70 kg

DRUGS (8)
  1. AMBISOME [Concomitant]
     Dosage: 400 MG, 1X/DAY
     Route: 042
     Dates: start: 20081021
  2. ZYVOX [Suspect]
     Dosage: 300 MG, 2X/DAY
     Route: 042
     Dates: start: 20081103, end: 20081112
  3. GENTALLINE [Concomitant]
     Dates: start: 20081013, end: 20081021
  4. PIPERACILLIN AND TAZOBACTAM [Suspect]
     Dosage: 4G/500MG
     Route: 042
     Dates: start: 20081021, end: 20081113
  5. VANCOMYCIN HCL [Suspect]
     Dosage: UNK
     Route: 042
     Dates: start: 20081013, end: 20081027
  6. CANCIDAS [Concomitant]
     Dosage: 300 MG, 1X/DAY
     Route: 042
     Dates: start: 20081031
  7. VANCOMYCIN HCL [Suspect]
     Dosage: UNK
     Route: 042
     Dates: start: 20081116, end: 20081119
  8. POSACONAZOLE [Concomitant]
     Dosage: 800 MG, 1X/DAY
     Route: 042
     Dates: start: 20081103, end: 20081124

REACTIONS (3)
  - DRUG RASH WITH EOSINOPHILIA AND SYSTEMIC SYMPTOMS [None]
  - THROMBOCYTOPENIA [None]
  - RENAL FAILURE [None]
